FAERS Safety Report 12885587 (Version 2)
Quarter: 2016Q4

REPORT INFORMATION
  Report Type: Spontaneous
  Country: GR (occurrence: GR)
  Receive Date: 20161026
  Receipt Date: 20161109
  Transmission Date: 20170207
  Serious: Yes (Hospitalization)
  Sender: FDA-Public Use
  Company Number: GR-PFIZER INC-2016494682

PATIENT
  Age: 71 Year
  Sex: Female

DRUGS (11)
  1. GLUCOPHAGE [Concomitant]
     Active Substance: METFORMIN HYDROCHLORIDE
     Dosage: UNK
  2. COPALIA [Concomitant]
     Active Substance: AMLODIPINE BESYLATE\VALSARTAN
     Dosage: UNK
  3. THYROHORMONE [Concomitant]
     Active Substance: LEVOTHYROXINE SODIUM
     Dosage: UNK
  4. CILROTON [Concomitant]
     Dosage: UNK
  5. ANGORON [Suspect]
     Active Substance: AMIODARONE HYDROCHLORIDE
     Dosage: UNK, 2X/DAY
     Route: 048
     Dates: end: 20161013
  6. ANGORON [Suspect]
     Active Substance: AMIODARONE HYDROCHLORIDE
     Dosage: 3 DF, DAILY
     Route: 048
     Dates: start: 20161014, end: 20161016
  7. ANGORON [Suspect]
     Active Substance: AMIODARONE HYDROCHLORIDE
     Dosage: 1 DF, DAILY
     Route: 048
  8. ANGORON [Suspect]
     Active Substance: AMIODARONE HYDROCHLORIDE
     Dosage: 2 DF, DAILY
     Route: 048
     Dates: start: 20161017
  9. SOLOSA [Concomitant]
     Active Substance: GLIMEPIRIDE
     Dosage: UNK
  10. ELIQUIS [Concomitant]
     Active Substance: APIXABAN
     Dosage: UNK
  11. T4 [Concomitant]
     Active Substance: LEVOTHYROXINE
     Dosage: UNK

REACTIONS (7)
  - Dyspepsia [Recovered/Resolved]
  - Arrhythmia [Recovered/Resolved]
  - Flatulence [Recovered/Resolved]
  - Rash pustular [Unknown]
  - Expired product administered [Recovered/Resolved]
  - Dyspnoea [Recovered/Resolved]
  - Constipation [Recovered/Resolved]

NARRATIVE: CASE EVENT DATE: 20161027
